FAERS Safety Report 20776793 (Version 3)
Quarter: 2022Q2

REPORT INFORMATION
  Report Type: Report from Study
  Country: US (occurrence: US)
  Receive Date: 20220502
  Receipt Date: 20220525
  Transmission Date: 20220720
  Serious: Yes (Death, Other)
  Sender: FDA-Public Use
  Company Number: US-PFIZER INC-202200641075

PATIENT
  Age: 92 Year
  Sex: Male

DRUGS (3)
  1. TAFAMIDIS MEGLUMINE [Suspect]
     Active Substance: TAFAMIDIS MEGLUMINE
     Indication: Transient ischaemic attack
     Dosage: 20-80 MG, DAILY
     Route: 048
     Dates: start: 20141007, end: 20191017
  2. TAFAMIDIS MEGLUMINE [Suspect]
     Active Substance: TAFAMIDIS MEGLUMINE
     Dosage: 80 MG, DAILY
     Route: 048
     Dates: start: 20191018, end: 20200130
  3. TAFAMIDIS MEGLUMINE [Suspect]
     Active Substance: TAFAMIDIS MEGLUMINE
     Dosage: 20 MG, DAILY
     Route: 048
     Dates: start: 20200131

REACTIONS (1)
  - Death [Fatal]

NARRATIVE: CASE EVENT DATE: 20220313
